FAERS Safety Report 8125535-X (Version None)
Quarter: 2012Q1

REPORT INFORMATION
  Report Type: 
  Country: None (occurrence: None)
  Receive Date: 20120209
  Receipt Date: 20120202
  Transmission Date: 20120608
  Serious: Yes (Disabling, Other)
  Sender: FDA-Public Use
  Company Number: PHHY2012CA009320

PATIENT
  Sex: Female
  Weight: 62 kg

DRUGS (9)
  1. CAMPTOSAR [Suspect]
     Indication: COLON CANCER METASTATIC
     Dosage: 180 MG/M2, ONCE/SINGLE
     Route: 042
     Dates: start: 20110725
  2. CAMPTOSAR [Suspect]
     Dosage: 150 MG/M2, UNK
     Route: 042
     Dates: end: 20110906
  3. CAMPTOSAR [Suspect]
     Dosage: 150 MG/M2, UNK
     Route: 042
  4. BEVACIZUMAB [Suspect]
     Dosage: 5 MG/KG, UNK
     Route: 042
     Dates: end: 20110906
  5. BEVACIZUMAB [Suspect]
     Dosage: 5 MG/KG, UNK
     Route: 042
  6. BEVACIZUMAB [Suspect]
     Indication: COLON CANCER METASTATIC
     Dosage: 5 MG/KG, UNK
     Route: 042
     Dates: start: 20110725
  7. FLUOROURACIL [Suspect]
     Indication: COLON CANCER METASTATIC
     Dosage: 180 MG/M2, ONCE/SINGLE
     Route: 040
     Dates: start: 20110725
  8. FLUOROURACIL [Suspect]
     Dosage: 2000 MG/M2, UNK
  9. FLUOROURACIL [Suspect]
     Dosage: 2000 MG/M2, UNK
     Dates: end: 20110906

REACTIONS (2)
  - PULMONARY TOXICITY [None]
  - FATIGUE [None]
